FAERS Safety Report 8395915-6 (Version None)
Quarter: 2012Q2

REPORT INFORMATION
  Report Type: 
  Country: None (occurrence: None)
  Receive Date: 20120529
  Receipt Date: 20120529
  Transmission Date: 20120825
  Serious: No
  Sender: FDA-Public Use
  Company Number: None

PATIENT
  Sex: Male

DRUGS (1)
  1. TARCEVA [Suspect]
     Dosage: 150MG DAILY BY MOUTH
     Route: 048
     Dates: start: 20120401

REACTIONS (3)
  - ABDOMINAL DISTENSION [None]
  - ILL-DEFINED DISORDER [None]
  - DECREASED APPETITE [None]
